FAERS Safety Report 4615171-1 (Version None)
Quarter: 2005Q1

REPORT INFORMATION
  Report Type: 
  Country: None (occurrence: None)
  Receive Date: 20050322
  Receipt Date: 20050310
  Transmission Date: 20050727
  Serious: Yes (Hospitalization)
  Sender: FDA-Public Use
  Company Number: FR-GLAXOSMITHKLINE-B0375005A

PATIENT
  Age: 47 Year
  Sex: Female

DRUGS (7)
  1. ZOPHREN [Suspect]
     Indication: PROPHYLAXIS OF NAUSEA AND VOMITING
     Route: 042
     Dates: start: 20041227
  2. LARGACTIL [Suspect]
     Route: 042
     Dates: start: 20041227
  3. PRIMPERAN TAB [Suspect]
     Route: 042
     Dates: start: 20041227
  4. SOLU-MEDROL [Suspect]
     Route: 042
     Dates: start: 20041227
  5. NAVELBINE [Suspect]
     Indication: LUNG NEOPLASM
     Dosage: 55MG CYCLIC
     Route: 042
     Dates: start: 20041227, end: 20041227
  6. CISPLATIN [Suspect]
     Indication: LUNG NEOPLASM
     Dosage: 220MG CYCLIC
     Route: 042
     Dates: start: 20041227, end: 20041227
  7. TRANXENE [Suspect]
     Dosage: 20MG PER DAY
     Route: 048
     Dates: start: 20041227, end: 20050102

REACTIONS (4)
  - ALANINE AMINOTRANSFERASE INCREASED [None]
  - ASPARTATE AMINOTRANSFERASE INCREASED [None]
  - GAMMA-GLUTAMYLTRANSFERASE INCREASED [None]
  - WHITE BLOOD CELL COUNT DECREASED [None]
